FAERS Safety Report 7653677-1 (Version None)
Quarter: 2011Q3

REPORT INFORMATION
  Report Type: 
  Country: None (occurrence: None)
  Receive Date: 20110803
  Receipt Date: 20110727
  Transmission Date: 20111222
  Serious: Yes (Other)
  Sender: FDA-Public Use
  Company Number: US-AMGEN-USASP2011026856

PATIENT
  Age: 68 Year
  Sex: Male
  Weight: 97.9 kg

DRUGS (16)
  1. VICTOZA [Concomitant]
     Dosage: 0.8 MG, UNK
     Route: 058
  2. GLYBURIDE AND METFORMIN HYDROCHLORIDE [Concomitant]
     Route: 048
  3. PREDNISONE [Concomitant]
     Dosage: 2.5 MG, UNK
     Dates: start: 20100812
  4. LANTUS [Concomitant]
  5. NPLATE [Suspect]
     Indication: IDIOPATHIC THROMBOCYTOPENIC PURPURA
     Dosage: 1 A?G/KG, UNK
     Dates: start: 20100820, end: 20110126
  6. NPLATE [Suspect]
     Dates: start: 20100820
  7. FLOMAX [Concomitant]
     Dosage: 0.4 MG, BID
     Route: 048
  8. NIASPAN [Concomitant]
     Dosage: 500 MG, QD
     Route: 048
  9. OMEPRAZOLE [Concomitant]
     Dosage: 40 MG, QD
  10. VIAGRA [Concomitant]
     Dosage: 50 MG, PRN
     Route: 048
  11. FUROSEMIDE [Concomitant]
     Dosage: 20 MG, QOD
     Route: 048
  12. VERAPAMIL [Concomitant]
     Dosage: 180 MG, BID
  13. XALATAN [Concomitant]
     Route: 047
  14. ASPIRIN [Concomitant]
     Dosage: 325 MG, QD
     Route: 048
  15. PRAVASTATIN SODIUM [Concomitant]
     Dosage: 80 MG, QD
     Route: 048
  16. DIGOXIN [Concomitant]
     Dosage: 250 A?G, UNK
     Route: 048

REACTIONS (3)
  - DIABETES MELLITUS INADEQUATE CONTROL [None]
  - OEDEMA PERIPHERAL [None]
  - VENOUS INSUFFICIENCY [None]
